FAERS Safety Report 4835900-1 (Version None)
Quarter: 2005Q4

REPORT INFORMATION
  Report Type: 
  Country: None (occurrence: None)
  Receive Date: 20051118
  Receipt Date: 20051114
  Transmission Date: 20060501
  Serious: Yes (Life-Threatening, Hospitalization)
  Sender: FDA-Public Use
  Company Number: 05H-163-0303701-00

PATIENT
  Age: 58 Year
  Sex: Male

DRUGS (3)
  1. VANCOMYCIN [Suspect]
     Indication: INFECTION
     Dosage: 1 GM, ONCE, INTRAVENOUS
     Route: 042
     Dates: start: 20051101, end: 20051101
  2. NARCOTIC [Concomitant]
  3. LINEZOLET (LINEZOLID) [Concomitant]

REACTIONS (3)
  - ANAPHYLACTIC SHOCK [None]
  - CARDIO-RESPIRATORY ARREST [None]
  - COMA [None]
